FAERS Safety Report 18978790 (Version 5)
Quarter: 2021Q3

REPORT INFORMATION
  Report Type: Spontaneous
  Country: GR (occurrence: GR)
  Receive Date: 20210308
  Receipt Date: 20210812
  Transmission Date: 20211014
  Serious: Yes (Other)
  Sender: FDA-Public Use
  Company Number: GR-ORGANON-1912GRC012282

PATIENT
  Age: 78 Year
  Sex: Female
  Weight: 60 kg

DRUGS (15)
  1. INEGY [Suspect]
     Active Substance: EZETIMIBE\SIMVASTATIN
     Dosage: 10+40 MILLIGRAM (DISCONTINUED)
     Route: 048
  2. VITAMIN D [ERGOCALCIFEROL] [Suspect]
     Active Substance: ERGOCALCIFEROL
     Dosage: UNK
     Route: 065
  3. CONCOR [Concomitant]
     Active Substance: BISOPROLOL FUMARATE
     Indication: PRODUCT USED FOR UNKNOWN INDICATION
     Dosage: 10 MILLIGRAM
     Route: 065
  4. MAXUDIN [Concomitant]
     Active Substance: PRAVASTATIN SODIUM
     Indication: PRODUCT USED FOR UNKNOWN INDICATION
     Dosage: 40 MILLIGRAM
     Route: 065
     Dates: start: 20210530, end: 20210613
  5. LEPUR [Suspect]
     Active Substance: SIMVASTATIN
     Indication: BLOOD CHOLESTEROL
     Dosage: UNK
     Route: 065
  6. COVERSYL [PERINDOPRIL ARGININE] [Concomitant]
     Active Substance: PERINDOPRIL ARGININE
     Indication: PRODUCT USED FOR UNKNOWN INDICATION
     Dosage: 5 MILLIGRAM
     Route: 065
  7. LEXOTANIL [Concomitant]
     Active Substance: BROMAZEPAM
     Indication: PRODUCT USED FOR UNKNOWN INDICATION
     Dosage: UNK
     Route: 065
  8. EVIOL [Concomitant]
     Active Substance: TOCOPHEROL
     Indication: PRODUCT USED FOR UNKNOWN INDICATION
     Dosage: 1 IN THE MORNING AFTER BREAKFAST
     Route: 065
     Dates: start: 20210530, end: 20210613
  9. NEURONTIN [Concomitant]
     Active Substance: GABAPENTIN
     Indication: NERVOUS SYSTEM DISORDER
     Dosage: 300 MILLIGRAM
     Route: 065
     Dates: start: 20210530, end: 20210613
  10. DEPON [Suspect]
     Active Substance: ACETAMINOPHEN
     Indication: BACK PAIN
     Dosage: UNK
     Route: 065
  11. BEPANTHOL [DEXPANTHENOL] [Suspect]
     Active Substance: DEXPANTHENOL
     Indication: PRURITUS
     Dosage: UNK
     Route: 065
  12. ZODIN [OMEGA?3?ACID ETHYL ESTER] [Concomitant]
     Indication: PRODUCT USED FOR UNKNOWN INDICATION
     Dosage: 40 MILLIGRAM
     Route: 065
     Dates: start: 20210530, end: 20210613
  13. INEGY [Suspect]
     Active Substance: EZETIMIBE\SIMVASTATIN
     Indication: PRODUCT USED FOR UNKNOWN INDICATION
     Dosage: 10+20 MILLIGRAM (CONTINUED)
     Route: 048
     Dates: start: 2019, end: 20210417
  14. NEXIUM I.V. [Suspect]
     Active Substance: ESOMEPRAZOLE SODIUM
     Indication: ABDOMINAL DISCOMFORT
     Dosage: UNK
     Route: 042
  15. COSOPT [Concomitant]
     Active Substance: DORZOLAMIDE HYDROCHLORIDE\TIMOLOL MALEATE
     Indication: PRODUCT USED FOR UNKNOWN INDICATION
     Dosage: 20 MG MONODOSE EYE DROPS FOR A MONTH AT NIGHT
     Route: 065

REACTIONS (40)
  - Myalgia [Recovering/Resolving]
  - Psoriasis [Unknown]
  - Tooth fracture [Unknown]
  - Muscular weakness [Unknown]
  - Muscle swelling [Unknown]
  - Syncope [Unknown]
  - Haematoma [Unknown]
  - Confusional state [Recovered/Resolved]
  - Dizziness [Unknown]
  - Arthralgia [Recovering/Resolving]
  - Blood cholesterol increased [Unknown]
  - Pruritus [Recovering/Resolving]
  - Swelling face [Unknown]
  - Nausea [Unknown]
  - Osteopenia [Unknown]
  - Kyphosis [Unknown]
  - Anxiety [Recovered/Resolved]
  - Alopecia [Unknown]
  - Adverse event [Unknown]
  - Blood glucose decreased [Unknown]
  - Blood triglycerides increased [Unknown]
  - Gastrointestinal disorder [Unknown]
  - Intraocular pressure increased [Unknown]
  - Loss of consciousness [Unknown]
  - Fall [Unknown]
  - Coccydynia [Unknown]
  - Balance disorder [Unknown]
  - Glaucoma [Unknown]
  - Product dose omission issue [Unknown]
  - Accident [Unknown]
  - Amnesia [Recovered/Resolved]
  - Musculoskeletal discomfort [Unknown]
  - Arrhythmia [Unknown]
  - Wrist fracture [Unknown]
  - Spinal column injury [Unknown]
  - Abnormal dreams [Recovered/Resolved]
  - Blood glucose abnormal [Unknown]
  - Contusion [Unknown]
  - Vomiting [Unknown]
  - Gait disturbance [Unknown]

NARRATIVE: CASE EVENT DATE: 20191227
